FAERS Safety Report 9284149 (Version 1)
Quarter: 2013Q2

REPORT INFORMATION
  Report Type: Spontaneous
  Country: US (occurrence: US)
  Receive Date: 20130510
  Receipt Date: 20130510
  Transmission Date: 20140414
  Serious: No
  Sender: FDA-Public Use
  Company Number: US-009507513-1305USA003074

PATIENT
  Sex: Male

DRUGS (1)
  1. VICTRELIS [Suspect]

REACTIONS (2)
  - Swelling [Unknown]
  - Anal pruritus [Unknown]
